FAERS Safety Report 19548260 (Version 1)
Quarter: 2021Q3

REPORT INFORMATION
  Report Type: Spontaneous
  Country: US (occurrence: US)
  Receive Date: 20210715
  Receipt Date: 20210715
  Transmission Date: 20211014
  Serious: No
  Sender: FDA-Public Use
  Company Number: US-CIPLA LTD.-2021US04475

PATIENT

DRUGS (8)
  1. EMTRICITABINE/TENOFOVIR [Suspect]
     Active Substance: EMTRICITABINE\TENOFOVIR
     Indication: ANTIRETROVIRAL THERAPY
     Dosage: 1 TOTAL DAILY DOSE, 1ST COURSE
     Route: 048
  2. ATAZANAVIR. [Suspect]
     Active Substance: ATAZANAVIR
     Dosage: A TOTAL DAILY DOSE OF 400 (UNITS UNSPECIFIED), 2ND COURSE
     Route: 048
  3. ZIDOVUDINE. [Suspect]
     Active Substance: ZIDOVUDINE
     Dosage: SECOND COURSE, SINGLE TOTAL DOSE
     Route: 042
  4. ZIDOVUDINE. [Suspect]
     Active Substance: ZIDOVUDINE
     Indication: ANTIRETROVIRAL THERAPY
     Dosage: FIRST COURSE, 2 TOTAL DOSES
     Route: 042
  5. RITONAVIR. [Suspect]
     Active Substance: RITONAVIR
     Indication: ANTIRETROVIRAL THERAPY
     Dosage: 1 TOTAL DAILY DOSE, 1ST COURSE
     Route: 048
  6. ATAZANAVIR SULFATE;COBICISTAT [Suspect]
     Active Substance: ATAZANAVIR SULFATE\COBICISTAT
     Indication: ANTIRETROVIRAL THERAPY
     Dosage: FIRST COURSE AT SINGLE TOTAL DOSE
     Route: 048
  7. ATAZANAVIR. [Suspect]
     Active Substance: ATAZANAVIR
     Indication: ANTIRETROVIRAL THERAPY
     Dosage: 1 TOTAL DAILY DOSE, 1ST COURSE
     Route: 048
  8. EMTRICITABINE;TENOFOVIR ALAFENAMIDE [Suspect]
     Active Substance: EMTRICITABINE\TENOFOVIR
     Indication: ANTIRETROVIRAL THERAPY
     Dosage: FIRST COURSE AT A SINGLE TOTAL DOSE
     Route: 048

REACTIONS (2)
  - No adverse event [Unknown]
  - Exposure during pregnancy [Unknown]
